FAERS Safety Report 22351556 (Version 1)
Quarter: 2023Q2

REPORT INFORMATION
  Report Type: Spontaneous
  Country: US (occurrence: US)
  Receive Date: 20230522
  Receipt Date: 20230522
  Transmission Date: 20230722
  Serious: Yes (Life-Threatening, Hospitalization, Other)
  Sender: FDA-Public Use
  Company Number: US-BRACCO-2023US02355

PATIENT
  Age: 56 Year
  Sex: Female

DRUGS (2)
  1. PROHANCE [Suspect]
     Active Substance: GADOTERIDOL
     Indication: Spinal myelogram
     Dosage: 7 ML
     Route: 037
  2. LIDOCAINE [Concomitant]
     Active Substance: LIDOCAINE
     Dosage: 1 ML

REACTIONS (2)
  - Generalised tonic-clonic seizure [Recovering/Resolving]
  - Cardiac arrest [Recovering/Resolving]
